FAERS Safety Report 26217109 (Version 1)
Quarter: 2025Q4

REPORT INFORMATION
  Report Type: Spontaneous
  Country: GB (occurrence: GB)
  Receive Date: 20251231
  Receipt Date: 20251231
  Transmission Date: 20260118
  Serious: Yes (Other)
  Sender: BAXTER
  Company Number: GB-BAXTER-2025BAX026465

PATIENT
  Sex: Female

DRUGS (8)
  1. SODIUM CHLORIDE [Suspect]
     Active Substance: SODIUM CHLORIDE
     Dosage: 250 ML, EVERY 8 WK
     Route: 042
  2. WATER FOR INJECTION [Suspect]
     Active Substance: WATER
     Dosage: UNK,8 WEEKLY
     Route: 042
  3. SODIUM CHLORIDE [Suspect]
     Active Substance: SODIUM CHLORIDE
     Indication: Catheter management
     Dosage: UNK
     Route: 065
  4. INFLIXIMAB [Suspect]
     Active Substance: INFLIXIMAB
     Indication: Crohn^s disease
     Dosage: 285 MG, EVERY 8 WK
     Route: 042
  5. AZATHIOPRINE [Concomitant]
     Active Substance: AZATHIOPRINE
     Dosage: NOT BEEN TAKING FOR AROUND 3 MONTHS
     Route: 065
  6. AZATHIOPRINE [Concomitant]
     Active Substance: AZATHIOPRINE
     Dosage: TAKING THEM AGAIN FOR THE LAST WEEK AND HALF
     Route: 065
  7. MESALAMINE [Concomitant]
     Active Substance: MESALAMINE
     Dosage: HAS NOT BEEN TAKING FOR THE PAST TWO WEEKS
     Route: 065
  8. MESALAMINE [Concomitant]
     Active Substance: MESALAMINE
     Dosage: TAKING THEM AGAIN FOR THE LAST WEEK AND HALF AND
     Route: 065

REACTIONS (2)
  - Haematochezia [Not Recovered/Not Resolved]
  - Fatigue [Not Recovered/Not Resolved]
